FAERS Safety Report 5834184-5 (Version None)
Quarter: 2008Q3

REPORT INFORMATION
  Report Type: 
  Country: None (occurrence: None)
  Receive Date: 20080801
  Receipt Date: 20080727
  Transmission Date: 20090109
  Serious: Yes (Other)
  Sender: FDA-Public Use
  Company Number: 031363

PATIENT
  Age: 16 Year
  Sex: Female
  Weight: 47.6 kg

DRUGS (1)
  1. PLAN B [Suspect]
     Dosage: 1 TABLET, Q 12HR, ORAL
     Route: 048
     Dates: start: 20080727, end: 20080727

REACTIONS (2)
  - DIZZINESS [None]
  - SYNCOPE [None]
